FAERS Safety Report 7222260-4 (Version None)
Quarter: 2011Q1

REPORT INFORMATION
  Report Type: 
  Country: None (occurrence: None)
  Receive Date: 20110112
  Receipt Date: 20110107
  Transmission Date: 20110831
  Serious: Yes (Life-Threatening)
  Sender: FDA-Public Use
  Company Number: GB-MERCK-1004GBR00124

PATIENT
  Age: 41 Year
  Sex: Female

DRUGS (17)
  1. ACETAMINOPHEN [Concomitant]
     Route: 048
  2. TIMOLOL MALEATE [Concomitant]
     Route: 048
  3. CARBAMAZEPINE [Concomitant]
     Route: 048
  4. BUTYLSCOPOLAMINE BROMIDE [Concomitant]
     Route: 051
  5. LEVOMEPROMAZINE [Concomitant]
     Route: 051
  6. DOMPERIDONE [Concomitant]
     Route: 048
  7. THIAMINE [Concomitant]
     Route: 048
  8. OXYCODONE [Concomitant]
     Route: 051
  9. GABAPENTIN [Concomitant]
     Route: 048
  10. MESNA [Concomitant]
     Route: 042
  11. EMEND [Suspect]
     Route: 048
     Dates: start: 20100427, end: 20100427
  12. LANSOPRAZOLE [Concomitant]
     Route: 048
  13. CALCIUM CARBONATE AND CHOLECALCIFEROL [Concomitant]
     Route: 048
  14. PREDNISOLONE [Concomitant]
     Route: 048
  15. CYCLOPHOSPHAMIDE [Concomitant]
     Route: 042
  16. ONDANSETRON [Concomitant]
     Route: 048
  17. LIDOCAINE [Concomitant]
     Indication: ULCER
     Route: 061

REACTIONS (5)
  - PYREXIA [None]
  - UNRESPONSIVE TO STIMULI [None]
  - RASH [None]
  - FACE OEDEMA [None]
  - HYPOTENSION [None]
